FAERS Safety Report 6448132-0 (Version None)
Quarter: 2009Q4

REPORT INFORMATION
  Report Type: 
  Country: None (occurrence: None)
  Receive Date: 20091116
  Receipt Date: 20091030
  Transmission Date: 20100525
  Serious: Yes (Other)
  Sender: FDA-Public Use
  Company Number: 2009AL007096

PATIENT
  Age: 30 Year
  Sex: Female

DRUGS (3)
  1. FLUOXETINE [Suspect]
     Indication: NARCOLEPSY
  2. ORAL CONTRACEPTIVE NOS [Concomitant]
  3. MODAFINIL [Concomitant]

REACTIONS (2)
  - DRUG EXPOSURE DURING PREGNANCY [None]
  - PREGNANCY ON ORAL CONTRACEPTIVE [None]
